FAERS Safety Report 10169270 (Version 2)
Quarter: 2014Q2

REPORT INFORMATION
  Report Type: Spontaneous
  Country: US (occurrence: US)
  Receive Date: 20140513
  Receipt Date: 20140513
  Transmission Date: 20141212
  Serious: No
  Sender: FDA-Public Use
  Company Number: US-DRREDDYS-USA/USA/13/0035263

PATIENT
  Age: 15 Year
  Sex: Male
  Weight: 54.43 kg

DRUGS (1)
  1. GLYCOPYRROLATE [Suspect]
     Indication: HYPERHIDROSIS
     Route: 048
     Dates: start: 20131016

REACTIONS (2)
  - Drug ineffective for unapproved indication [Unknown]
  - Product quality issue [Unknown]
